FAERS Safety Report 4383173-9 (Version None)
Quarter: 2004Q2

REPORT INFORMATION
  Report Type: 
  Country: None (occurrence: None)
  Receive Date: 20040623
  Receipt Date: 20040301
  Transmission Date: 20050107
  Serious: Yes (Other)
  Sender: FDA-Public Use
  Company Number: PHFR2004GB01265

PATIENT
  Age: 54 Year
  Sex: Female

DRUGS (3)
  1. ZOMETA [Suspect]
     Indication: BREAST CANCER
     Route: 042
     Dates: start: 20040127, end: 20040127
  2. LETROZOLE [Concomitant]
     Indication: BREAST CANCER
     Route: 048
     Dates: start: 20040128
  3. CALCIUM                                 /N/A/ [Concomitant]
     Indication: BREAST CANCER
     Route: 048
     Dates: start: 20040128

REACTIONS (3)
  - ANTERIOR CHAMBER INFLAMMATION [None]
  - INTRAOCULAR PRESSURE INCREASED [None]
  - IRIDOCYCLITIS [None]
